FAERS Safety Report 4365369-5 (Version None)
Quarter: 2004Q2

REPORT INFORMATION
  Report Type: 
  Country: None (occurrence: None)
  Receive Date: 20040525
  Receipt Date: 20040503
  Transmission Date: 20050107
  Serious: Yes (Other)
  Sender: FDA-Public Use
  Company Number: USA040566609

PATIENT
  Age: 88 Year
  Sex: Female

DRUGS (1)
  1. FORTEO [Suspect]
     Dates: start: 20030601

REACTIONS (2)
  - LUMBAR VERTEBRAL FRACTURE [None]
  - PHARMACEUTICAL PRODUCT COMPLAINT [None]
